FAERS Safety Report 9000808 (Version 1)
Quarter: 2013Q1

REPORT INFORMATION
  Report Type: Spontaneous
  Country: US (occurrence: None)
  Receive Date: 20130103
  Receipt Date: 20130103
  Transmission Date: 20140127
  Serious: Yes (Disabling)
  Sender: FDA-Public Use
  Company Number: None

PATIENT
  Age: 66 Year
  Sex: Male
  Weight: 77.11 kg

DRUGS (1)
  1. LEVOFLOXACIN [Suspect]
     Indication: CHOLECYSTITIS INFECTIVE
     Dosage: BAG EVERY FEW HOURS IV
     Dates: start: 20060304, end: 20060306

REACTIONS (1)
  - Tendon rupture [None]
